FAERS Safety Report 4641657-X (Version None)
Quarter: 2005Q2

REPORT INFORMATION
  Report Type: 
  Country: None (occurrence: None)
  Receive Date: 20050420
  Receipt Date: 20050408
  Transmission Date: 20051028
  Serious: Yes (Hospitalization)
  Sender: FDA-Public Use
  Company Number: 05P-028-0296957-00

PATIENT
  Age: 74 Year
  Sex: Male
  Weight: 74.8435 kg

DRUGS (4)
  1. MAVIK [Suspect]
     Indication: BLOOD PRESSURE INCREASED
     Dosage: 1 MG, 1 IN 1 D, PER ORAL
     Route: 048
     Dates: start: 20041012
  2. ACETYL SALICYLIC ACID USP BAT [Concomitant]
  3. LEVOTHYROXINE SODIUM [Concomitant]
  4. PARACETAMOL [Concomitant]

REACTIONS (9)
  - CAROTID ARTERY STENOSIS [None]
  - CEREBRAL INFARCTION [None]
  - CEREBRAL THROMBOSIS [None]
  - CEREBROVASCULAR ACCIDENT [None]
  - DYSPHAGIA [None]
  - HEMIPARESIS [None]
  - KNEE ARTHROPLASTY [None]
  - POST PROCEDURAL COMPLICATION [None]
  - VISUAL DISTURBANCE [None]
